FAERS Safety Report 9485604 (Version 2)
Quarter: 2013Q4

REPORT INFORMATION
  Report Type: Report from Study
  Country: US (occurrence: US)
  Receive Date: 20130829
  Receipt Date: 20131106
  Transmission Date: 20140711
  Serious: Yes (Death)
  Sender: FDA-Public Use
  Company Number: US-ROCHE-1267371

PATIENT
  Age: 55 Year
  Sex: Male

DRUGS (1)
  1. ACTIVASE [Suspect]
     Indication: CARDIAC ARREST
     Route: 065

REACTIONS (1)
  - Cardiac arrest [Fatal]
